FAERS Safety Report 13215895 (Version 2)
Quarter: 2017Q1

REPORT INFORMATION
  Report Type: Spontaneous
  Country: US (occurrence: KR)
  Receive Date: 20170209
  Receipt Date: 20170314
  Transmission Date: 20170428
  Serious: Yes (Hospitalization)
  Sender: FDA-Public Use
  Company Number: US-SUNOVION-2016SUN003327

PATIENT
  Age: 71 Year
  Sex: Male
  Weight: 46 kg

DRUGS (7)
  1. PETHIDINE [Concomitant]
     Active Substance: MEPERIDINE
     Indication: BILIARY DRAINAGE
     Dosage: UNK
     Dates: start: 20130723
  2. ASIMA [Concomitant]
     Dosage: UNK
     Dates: start: 20130725, end: 20130803
  3. INDACATEROL [Suspect]
     Active Substance: INDACATEROL
     Indication: CHRONIC OBSTRUCTIVE PULMONARY DISEASE
     Dosage: 150 ?G, UNK
     Route: 055
     Dates: start: 20130328
  4. MIDAZOLAM [Concomitant]
     Active Substance: MIDAZOLAM HYDROCHLORIDE
     Indication: BILIARY DRAINAGE
     Dosage: UNK
     Dates: start: 20130723
  5. PACETA [Concomitant]
     Indication: BILIARY DRAINAGE
     Dosage: UNK
     Dates: start: 20130723
  6. FOY [Concomitant]
     Active Substance: GABEXATE MESYLATE
     Indication: BILIARY DRAINAGE
     Dosage: UNK
     Dates: start: 20130723
  7. ERDOS [Concomitant]
     Dosage: UNK
     Dates: start: 20130725, end: 20130803

REACTIONS (3)
  - Cholangitis acute [Recovered/Resolved]
  - Abdominal pain upper [Recovered/Resolved]
  - Vomiting [Recovered/Resolved]

NARRATIVE: CASE EVENT DATE: 20130723
